FAERS Safety Report 19894272 (Version 1)
Quarter: 2021Q3

REPORT INFORMATION
  Report Type: Spontaneous
  Country: US (occurrence: US)
  Receive Date: 20210928
  Receipt Date: 20210928
  Transmission Date: 20211014
  Serious: Yes (Other)
  Sender: FDA-Public Use
  Company Number: US-PFIZER INC-202101218678

PATIENT
  Age: 89 Year
  Sex: Female
  Weight: 56.7 kg

DRUGS (1)
  1. LORAZEPAM. [Suspect]
     Active Substance: LORAZEPAM
     Dosage: UNK

REACTIONS (9)
  - Fine motor skill dysfunction [Unknown]
  - Loss of consciousness [Recovered/Resolved]
  - Intentional product misuse [Unknown]
  - Coordination abnormal [Unknown]
  - Memory impairment [Recovering/Resolving]
  - Movement disorder [Unknown]
  - Anxiety [Unknown]
  - Gait inability [Unknown]
  - Wrong technique in product usage process [Unknown]

NARRATIVE: CASE EVENT DATE: 20210222
